FAERS Safety Report 5617414-4 (Version None)
Quarter: 2008Q1

REPORT INFORMATION
  Report Type: 
  Country: None (occurrence: None)
  Receive Date: 20080207
  Receipt Date: 20070905
  Transmission Date: 20080703
  Serious: No
  Sender: FDA-Public Use
  Company Number: A0678863A

PATIENT
  Age: 69 Year
  Sex: Female

DRUGS (8)
  1. PAXIL [Suspect]
     Indication: DRUG USE FOR UNKNOWN INDICATION
     Dosage: 40MG PER DAY
     Route: 048
     Dates: start: 20040901, end: 20040901
  2. SYNTHROID [Concomitant]
  3. PREVACID [Concomitant]
  4. MULTI-VITAMIN [Concomitant]
  5. LAXIA [Concomitant]
  6. TRAZODONE HCL [Concomitant]
  7. LACTASE [Concomitant]
  8. TRAMADOL HCL [Concomitant]

REACTIONS (1)
  - HYPERTENSION [None]
